FAERS Safety Report 4480440-5 (Version None)
Quarter: 2004Q4

REPORT INFORMATION
  Report Type: 
  Country: None (occurrence: None)
  Receive Date: 20041018
  Receipt Date: 20041006
  Transmission Date: 20050328
  Serious: Yes (Other)
  Sender: FDA-Public Use
  Company Number: K200401509

PATIENT
  Age: 43 Year
  Sex: Female
  Weight: 114.3 kg

DRUGS (2)
  1. LEVOXYL [Suspect]
     Indication: HYPOTHYROIDISM
     Dosage: 150 MCG, QD, ORAL
     Route: 048
     Dates: start: 20020101
  2. ANTIHYPERTENSIVE [Concomitant]

REACTIONS (3)
  - ODYNOPHAGIA [None]
  - PHARYNGOLARYNGEAL PAIN [None]
  - RETCHING [None]
